FAERS Safety Report 25179412 (Version 1)
Quarter: 2025Q2

REPORT INFORMATION
  Report Type: Spontaneous
  Country: US (occurrence: None)
  Receive Date: 20250409
  Receipt Date: 20250409
  Transmission Date: 20250717
  Serious: Yes (Hospitalization)
  Sender: FDA-CTU
  Company Number: None

PATIENT
  Sex: Male

DRUGS (8)
  1. KESIMPTA [Suspect]
     Active Substance: OFATUMUMAB
     Indication: Multiple sclerosis
     Dosage: FREQUENCY : MONTHLY;?
     Route: 058
  2. ESCITALOPRAM [Concomitant]
     Active Substance: ESCITALOPRAM OXALATE
  3. ESCITALOPRAM [Concomitant]
     Active Substance: ESCITALOPRAM OXALATE
  4. LEVOCARNITIN TAB 330MG [Concomitant]
  5. MAGOXIDE TAB 400MG [Concomitant]
  6. TURMERIC CAP 500MG [Concomitant]
  7. VITAMIN D3 CAP 50MCG [Concomitant]
  8. VITAMIN E CAP 1OOOUNIT [Concomitant]

REACTIONS (1)
  - Neuralgic amyotrophy [None]
